FAERS Safety Report 4390311-0 (Version None)
Quarter: 2004Q2

REPORT INFORMATION
  Report Type: 
  Country: None (occurrence: None)
  Receive Date: 20040628
  Receipt Date: 20030404
  Transmission Date: 20050107
  Serious: Yes (Hospitalization, Disabling, Other)
  Sender: FDA-Public Use
  Company Number: 2001083002SK

PATIENT
  Age: 45 Year
  Sex: Male
  Weight: 77 kg

DRUGS (10)
  1. EPERENONE (EPLERENONE) BLIND BROKEN [Suspect]
     Indication: CARDIAC FAILURE
     Dosage: 25 MG, QD,  ORAL
     Route: 048
     Dates: start: 20010807, end: 20010907
  2. ASPIRIN [Concomitant]
  3. BISOPROLOL FUMARATE [Concomitant]
  4. RAMIPRIL [Concomitant]
  5. PRAVASTATIN [Concomitant]
  6. METOPROLOL [Concomitant]
  7. NADROPARIN CALCIUM (HEPARIN-FRACTION, CALCIUM SALT) [Concomitant]
  8. ISOSRBIDE MONONITRATE [Concomitant]
  9. ALLOPURINOL [Concomitant]
  10. SILYMARIN (SILYMARIN) [Concomitant]

REACTIONS (10)
  - ALANINE AMINOTRANSFERASE INCREASED [None]
  - ARTHRALGIA [None]
  - CHEST X-RAY ABNORMAL [None]
  - HAEMOGLOBIN INCREASED [None]
  - HYPERSENSITIVITY [None]
  - ILL-DEFINED DISORDER [None]
  - LEUKOCYTOCLASTIC VASCULITIS [None]
  - OEDEMA PERIPHERAL [None]
  - PYREXIA [None]
  - URTICARIA [None]
